FAERS Safety Report 18069481 (Version 3)
Quarter: 2021Q2

REPORT INFORMATION
  Report Type: Report from Study
  Country: CA (occurrence: CA)
  Receive Date: 20200726
  Receipt Date: 20210621
  Transmission Date: 20210717
  Serious: Yes (Death, Hospitalization, Other)
  Sender: FDA-Public Use
  Company Number: CA-B.I. PHARMACEUTICALS,INC./RIDGEFIELD-2020-BI-018379

PATIENT
  Age: 67 Year
  Sex: Male

DRUGS (3)
  1. AMLODIPINE [Suspect]
     Active Substance: AMLODIPINE BESYLATE
     Indication: HYPERTENSION
     Route: 065
  2. OFEV [Suspect]
     Active Substance: NINTEDANIB
     Indication: IDIOPATHIC PULMONARY FIBROSIS
     Route: 048
     Dates: start: 20191227, end: 20200731
  3. AMLODIPINE [Suspect]
     Active Substance: AMLODIPINE BESYLATE
     Route: 065
     Dates: start: 20200512, end: 20200612

REACTIONS (9)
  - Death [Fatal]
  - Diarrhoea [Recovered/Resolved]
  - Pneumothorax [Recovered/Resolved]
  - Post procedural pneumonia [Recovered/Resolved]
  - Lung neoplasm malignant [Recovered/Resolved]
  - Hypotension [Unknown]
  - Blood cholesterol abnormal [Unknown]
  - Decreased appetite [Recovered/Resolved]
  - Hypertension [Unknown]

NARRATIVE: CASE EVENT DATE: 20200301
